FAERS Safety Report 6277660-6 (Version None)
Quarter: 2009Q3

REPORT INFORMATION
  Report Type: 
  Country: None (occurrence: None)
  Receive Date: 20090720
  Receipt Date: 20090709
  Transmission Date: 20100115
  Serious: Yes (Hospitalization, Other)
  Sender: FDA-Public Use
  Company Number: ADR6952009

PATIENT
  Age: 57 Year
  Sex: Male

DRUGS (3)
  1. SIMVASTATIN [Suspect]
     Indication: HYPERCHOLESTEROLAEMIA
     Dosage: 1.40MG
     Dates: start: 20080101, end: 20080411
  2. TAMBOCOR (FLECAINIDE) [Concomitant]
  3. MAREVAN(WARFARIN) [Concomitant]

REACTIONS (3)
  - GAIT DISTURBANCE [None]
  - MITOCHONDRIAL MYOPATHY [None]
  - PAIN IN EXTREMITY [None]
